FAERS Safety Report 10466234 (Version 1)
Quarter: 2014Q3

REPORT INFORMATION
  Report Type: Spontaneous
  Country: US (occurrence: None)
  Receive Date: 20140919
  Receipt Date: 20140919
  Transmission Date: 20150326
  Serious: No
  Sender: FDA-Public Use
  Company Number: None

PATIENT
  Age: 83 Year
  Sex: Female
  Weight: 61.24 kg

DRUGS (8)
  1. MIRTAZAPINE FOR SLEEP [Concomitant]
  2. PERCOCET WITH TRAMADOL [Concomitant]
  3. BENADRYL [Concomitant]
     Active Substance: DIPHENHYDRAMINE HYDROCHLORIDE
  4. HCTZ [Concomitant]
     Active Substance: HYDROCHLOROTHIAZIDE
  5. LANTUS INSULIN [Concomitant]
  6. DICLOFENAC SODIUM\LIDOCAINE [Suspect]
     Active Substance: DICLOFENAC SODIUM\LIDOCAINE
     Indication: ARTHRALGIA
     Dosage: 120 GMS/9GMS + 6 GMS ?2 PUFFS?4X/D?ON SKIN
     Route: 061
     Dates: start: 20140829
  7. AMLODAPINE [Concomitant]
  8. GLIPIZIDE. [Concomitant]
     Active Substance: GLIPIZIDE

REACTIONS (2)
  - Application site pruritus [None]
  - Application site rash [None]

NARRATIVE: CASE EVENT DATE: 20140903
